FAERS Safety Report 7378493-X (Version None)
Quarter: 2011Q1

REPORT INFORMATION
  Report Type: 
  Country: None (occurrence: None)
  Receive Date: 20110328
  Receipt Date: 20101217
  Transmission Date: 20110831
  Serious: Yes (Other)
  Sender: FDA-Public Use
  Company Number: US-AMGEN-USASP2010009936

PATIENT
  Age: 51 Year
  Sex: Female

DRUGS (9)
  1. LEVOTHYROXINE SODIUM [Concomitant]
  2. NEULASTA [Suspect]
     Indication: CHEMOTHERAPY
     Dosage: 6 MG, UNK
     Dates: start: 20101103
  3. ATENOLOL [Concomitant]
  4. PENICILLIN [Concomitant]
  5. ACYCLOVIR [Concomitant]
  6. ZOMETA [Concomitant]
  7. BACTRIM [Concomitant]
  8. NORCO [Concomitant]
     Indication: PAIN
  9. DEXAMETHASONE [Concomitant]

REACTIONS (6)
  - DIZZINESS [None]
  - DYSPNOEA [None]
  - NEUTROPHIL COUNT ABNORMAL [None]
  - LUNG NEOPLASM [None]
  - LOSS OF CONSCIOUSNESS [None]
  - MALAISE [None]
